FAERS Safety Report 8408861-6 (Version None)
Quarter: 2012Q2

REPORT INFORMATION
  Report Type: 
  Country: None (occurrence: None)
  Receive Date: 20120604
  Receipt Date: 20120305
  Transmission Date: 20120825
  Serious: No
  Sender: FDA-Public Use
  Company Number: US-NOVEN-12US004204

PATIENT
  Sex: Female

DRUGS (4)
  1. ALESSE [Concomitant]
     Indication: PAIN
  2. WELLBUTRIN [Concomitant]
     Indication: DEPRESSION
     Dosage: 150 MG, UNK
     Route: 048
  3. ALESSE [Concomitant]
     Indication: HAEMORRHAGE
     Route: 048
  4. DAYTRANA [Suspect]
     Indication: ATTENTION DEFICIT/HYPERACTIVITY DISORDER
     Dosage: 10 MG, UNK
     Route: 062
     Dates: start: 20120228

REACTIONS (4)
  - VOMITING [None]
  - BLOODY DISCHARGE [None]
  - NAUSEA [None]
  - DIZZINESS [None]
